FAERS Safety Report 26152320 (Version 1)
Quarter: 2025Q4

REPORT INFORMATION
  Report Type: Spontaneous
  Country: CH (occurrence: CH)
  Receive Date: 20251214
  Receipt Date: 20251214
  Transmission Date: 20260118
  Serious: Yes (Other)
  Sender: TEVA
  Company Number: None

PATIENT
  Age: 64 Year
  Sex: Female

DRUGS (22)
  1. VANCOCIN [Interacting]
     Active Substance: VANCOMYCIN HYDROCHLORIDE
     Indication: Product used for unknown indication
     Route: 042
     Dates: start: 20251115, end: 20251116
  2. VANCOCIN [Interacting]
     Active Substance: VANCOMYCIN HYDROCHLORIDE
     Indication: Product used for unknown indication
     Route: 042
     Dates: start: 202510, end: 20251114
  3. METAMUCIL [Concomitant]
     Active Substance: PLANTAGO SEED
     Indication: Product used for unknown indication
  4. HYDROMORPHONE [Concomitant]
     Active Substance: HYDROMORPHONE
     Indication: Product used for unknown indication
  5. POTASSIUM BICARBONATE\POTASSIUM CITRATE [Concomitant]
     Active Substance: POTASSIUM BICARBONATE\POTASSIUM CITRATE
     Indication: Product used for unknown indication
  6. URSODIOL [Concomitant]
     Active Substance: URSODIOL
     Indication: Product used for unknown indication
  7. SODIUM PHOSPHATE [Interacting]
     Active Substance: SODIUM PHOSPHATE
     Indication: Product used for unknown indication
     Dosage: 2 - 2 - 2 - 2
     Route: 065
  8. PREGABALIN [Interacting]
     Active Substance: PREGABALIN
     Indication: Product used for unknown indication
     Dosage: 1 - 0 - 1 - 0
     Route: 065
  9. FENTANYL CITRATE [Concomitant]
     Active Substance: FENTANYL CITRATE
     Indication: Product used for unknown indication
  10. SODIUM PICOSULFATE [Concomitant]
     Active Substance: SODIUM PICOSULFATE
     Indication: Product used for unknown indication
  11. CHOLESTYRAMINE [Concomitant]
     Active Substance: CHOLESTYRAMINE
     Indication: Product used for unknown indication
  12. LOSARTAN POTASSIUM [Interacting]
     Active Substance: LOSARTAN POTASSIUM
     Indication: Product used for unknown indication
     Dosage: 2 - 0 - 0 - 0
     Route: 065
  13. LASIX [Interacting]
     Active Substance: FUROSEMIDE
     Indication: Product used for unknown indication
     Route: 065
  14. METAMIZOLE [Interacting]
     Active Substance: METAMIZOLE
     Indication: Product used for unknown indication
     Dosage: TIME INTERVAL: TOTAL
     Route: 065
     Dates: start: 20251113, end: 20251113
  15. METAMIZOLE [Interacting]
     Active Substance: METAMIZOLE
     Indication: Product used for unknown indication
     Dosage: TIME INTERVAL: TOTAL
     Route: 065
     Dates: start: 20251115, end: 20251115
  16. MOVICOL [Concomitant]
     Active Substance: POLYETHYLENE GLYCOL 3350\POTASSIUM CHLORIDE\SODIUM BICARBONATE\SODIUM CHLORIDE
     Indication: Product used for unknown indication
  17. FRAGMIN [Concomitant]
     Active Substance: DALTEPARIN SODIUM
     Indication: Product used for unknown indication
  18. PANTOZOL [Interacting]
     Active Substance: PANTOPRAZOLE SODIUM
     Indication: Product used for unknown indication
     Dosage: 1 - 0 - 0 - 0
     Route: 048
  19. DIFLUCAN [Concomitant]
     Active Substance: FLUCONAZOLE
     Indication: Product used for unknown indication
  20. METHADONE [Concomitant]
     Active Substance: METHADONE HYDROCHLORIDE
     Indication: Product used for unknown indication
  21. MEROPENEM [Concomitant]
     Active Substance: MEROPENEM
     Indication: Product used for unknown indication
  22. Paspertin [Concomitant]
     Indication: Product used for unknown indication

REACTIONS (2)
  - Acute kidney injury [Not Recovered/Not Resolved]
  - Poisoning [Recovered/Resolved]

NARRATIVE: CASE EVENT DATE: 20251116
